FAERS Safety Report 7720159-8 (Version None)
Quarter: 2011Q3

REPORT INFORMATION
  Report Type: 
  Country: None (occurrence: None)
  Receive Date: 20110826
  Receipt Date: 20110826
  Transmission Date: 20111222
  Serious: Yes (Other)
  Sender: FDA-Public Use
  Company Number: None

PATIENT
  Sex: Female
  Weight: 64.4108 kg

DRUGS (2)
  1. LANSOPRAZOLE [Suspect]
     Indication: GASTRIC DISORDER
     Dosage: TAKE 1 CAPSULE BY MOUTH TWICE A DAY
     Route: 048
     Dates: start: 20110713, end: 20110722
  2. LANSOPRAZOLE [Suspect]
     Indication: OESOPHAGEAL DISORDER
     Dosage: TAKE 1 CAPSULE BY MOUTH TWICE A DAY
     Route: 048
     Dates: start: 20110713, end: 20110722

REACTIONS (2)
  - PRODUCT SUBSTITUTION ISSUE [None]
  - OEDEMA PERIPHERAL [None]
